FAERS Safety Report 14036172 (Version 1)
Quarter: 2017Q4

REPORT INFORMATION
  Report Type: Spontaneous
  Country: US (occurrence: US)
  Receive Date: 20171003
  Receipt Date: 20171003
  Transmission Date: 20180321
  Serious: No
  Sender: FDA-Public Use
  Company Number: US-ROCHE-1960940

PATIENT

DRUGS (1)
  1. OCREVUS [Suspect]
     Active Substance: OCRELIZUMAB
     Indication: MULTIPLE SCLEROSIS
     Dosage: UNKNOWN
     Route: 042

REACTIONS (5)
  - Eye pruritus [Unknown]
  - Urticaria [Unknown]
  - Dyspnoea [Unknown]
  - Bronchospasm [Unknown]
  - Throat irritation [Unknown]
